FAERS Safety Report 6263563-X (Version None)
Quarter: 2009Q3

REPORT INFORMATION
  Report Type: 
  Country: None (occurrence: None)
  Receive Date: 20090710
  Receipt Date: 20090504
  Transmission Date: 20100115
  Serious: No
  Sender: FDA-Public Use
  Company Number: A0780782A

PATIENT
  Age: 57 Year
  Sex: Female

DRUGS (14)
  1. TYKERB [Suspect]
     Indication: BREAST CANCER
     Dosage: 1250MG PER DAY
     Route: 048
     Dates: start: 20081101
  2. XELODA [Suspect]
     Indication: BREAST CANCER
     Route: 048
     Dates: start: 20081101, end: 20090316
  3. TAXOL [Suspect]
  4. TAXOTERE [Concomitant]
  5. DECADRON [Concomitant]
  6. BENADRYL [Concomitant]
  7. ZOFRAN [Concomitant]
  8. ZANTAC [Concomitant]
  9. PRILOSEC [Concomitant]
  10. EFFEXOR XR [Concomitant]
  11. KEFLEX [Concomitant]
  12. DARVOCET [Concomitant]
  13. TYLENOL [Concomitant]
  14. IMODIUM [Concomitant]

REACTIONS (7)
  - ABDOMINAL PAIN UPPER [None]
  - DIARRHOEA [None]
  - ERYTHEMA [None]
  - EXCORIATION [None]
  - FATIGUE [None]
  - INFLAMMATION [None]
  - SKIN DISCOLOURATION [None]
